FAERS Safety Report 20549390 (Version 2)
Quarter: 2022Q1

REPORT INFORMATION
  Report Type: Spontaneous
  Country: AU (occurrence: AU)
  Receive Date: 20220303
  Receipt Date: 20220330
  Transmission Date: 20220423
  Serious: Yes (Other)
  Sender: FDA-Public Use
  Company Number: AU-SUN PHARMACEUTICAL INDUSTRIES LTD-2022R1-327561

PATIENT
  Age: 51 Year
  Sex: Female

DRUGS (2)
  1. TILDRAKIZUMAB [Suspect]
     Active Substance: TILDRAKIZUMAB
     Indication: Lichen planus
     Dosage: 200 MILLIGRAM, MONTHLY, EVERY 4 WEEKS
     Route: 058
  2. METHOTREXATE [Concomitant]
     Active Substance: METHOTREXATE
     Indication: Lichen planus
     Dosage: 10 MILLIGRAM, WEEKLY
     Route: 065

REACTIONS (2)
  - Vulvovaginal candidiasis [Recovered/Resolved]
  - Off label use [Unknown]
